FAERS Safety Report 19623719 (Version 14)
Quarter: 2023Q2

REPORT INFORMATION
  Report Type: Spontaneous
  Country: JP (occurrence: JP)
  Receive Date: 20210728
  Receipt Date: 20230501
  Transmission Date: 20230722
  Serious: Yes (Death, Other)
  Sender: FDA-Public Use
  Company Number: JP-BRISTOL-MYERS SQUIBB COMPANY-BMS-2021-021607

PATIENT
  Age: 79 Year
  Sex: Male
  Weight: 46.3 kg

DRUGS (27)
  1. YERVOY [Suspect]
     Active Substance: IPILIMUMAB
     Indication: Metastatic renal cell carcinoma
     Route: 041
     Dates: start: 20200826, end: 20201026
  2. OPDIVO [Suspect]
     Active Substance: NIVOLUMAB
     Indication: Metastatic renal cell carcinoma
     Route: 041
     Dates: start: 20200826, end: 20210125
  3. OPDIVO [Suspect]
     Active Substance: NIVOLUMAB
     Route: 041
     Dates: start: 20210208, end: 20210830
  4. DENOSUMAB [Concomitant]
     Active Substance: DENOSUMAB
     Indication: Product used for unknown indication
     Dosage: UNK
     Route: 058
     Dates: start: 20200908, end: 20210510
  5. DENOSUMAB [Concomitant]
     Active Substance: DENOSUMAB
  6. HERBALS [Concomitant]
     Active Substance: HERBALS
     Indication: Product used for unknown indication
     Dosage: 2.5 G, Q8H
     Route: 048
     Dates: end: 20201004
  7. HERBALS [Concomitant]
     Active Substance: HERBALS
  8. SODIUM FERROUS CITRATE [Concomitant]
     Active Substance: SODIUM FERROUS CITRATE
     Indication: Product used for unknown indication
     Dosage: 50 MG, EVERYDAY
     Route: 048
     Dates: end: 20201004
  9. SODIUM FERROUS CITRATE [Concomitant]
     Active Substance: SODIUM FERROUS CITRATE
  10. METHYLCOBALAMIN [Concomitant]
     Active Substance: METHYLCOBALAMIN
     Indication: Product used for unknown indication
     Dosage: 500 UG, Q8H
     Route: 048
     Dates: end: 20201004
  11. METHYLCOBALAMIN [Concomitant]
     Active Substance: METHYLCOBALAMIN
  12. LOXOPROFEN SODIUM [Concomitant]
     Active Substance: LOXOPROFEN SODIUM
     Indication: Product used for unknown indication
     Dosage: 60 MG, Q12H
     Route: 048
     Dates: end: 20210510
  13. LOXOPROFEN SODIUM [Concomitant]
     Active Substance: LOXOPROFEN SODIUM
  14. VIDARABINE [Concomitant]
     Active Substance: VIDARABINE
     Indication: Product used for unknown indication
     Dosage: 1 DF, SEVERAL TIMES
     Route: 062
     Dates: start: 20200825
  15. VIDARABINE [Concomitant]
     Active Substance: VIDARABINE
  16. LANSOPRAZOLE [Concomitant]
     Active Substance: LANSOPRAZOLE
     Indication: Product used for unknown indication
     Dosage: 15 MG, EVERYDAY
     Route: 048
     Dates: end: 20210510
  17. LANSOPRAZOLE [Concomitant]
     Active Substance: LANSOPRAZOLE
  18. OXYCODONE HYDROCHLORIDE [Concomitant]
     Active Substance: OXYCODONE HYDROCHLORIDE
     Indication: Product used for unknown indication
     Dosage: 5 MG, Q12H
     Route: 048
     Dates: start: 20200825, end: 20210510
  19. OXYCODONE HYDROCHLORIDE [Concomitant]
     Active Substance: OXYCODONE HYDROCHLORIDE
  20. CALCIUM CARBONATE\CHOLECALCIFEROL\MAGNESIUM CARBONATE [Concomitant]
     Active Substance: CALCIUM CARBONATE\CHOLECALCIFEROL\MAGNESIUM CARBONATE
     Indication: Product used for unknown indication
     Dosage: 2 DF, EVERYDAY
     Route: 048
     Dates: start: 20200908, end: 20210510
  21. CALCIUM CARBONATE\CHOLECALCIFEROL\MAGNESIUM CARBONATE [Concomitant]
     Active Substance: CALCIUM CARBONATE\CHOLECALCIFEROL\MAGNESIUM CARBONATE
  22. OLMESARTAN [Concomitant]
     Active Substance: OLMESARTAN
     Indication: Product used for unknown indication
     Dosage: 10 MILLIGRAM, QD
     Route: 048
     Dates: end: 20201004
  23. ALINAMIN-F ODORLES [Concomitant]
     Indication: Product used for unknown indication
     Dosage: 50 MILLIGRAM, BID
     Route: 048
     Dates: end: 20201004
  24. PANVITAN BABY [Concomitant]
     Indication: Product used for unknown indication
     Dosage: 1 GRAM, BID
     Route: 048
     Dates: end: 20201004
  25. OXINORM [Concomitant]
     Indication: Product used for unknown indication
     Dosage: 2.5 MILLIGRAM, AS NEEDED
     Route: 048
     Dates: start: 20200825, end: 20210510
  26. OXINORM [Concomitant]
     Dosage: 2.5 MILLIGRAM, AS NEEDED
     Route: 048
     Dates: start: 20200825, end: 20210510
  27. OXINORM [Concomitant]
     Dosage: 2.5 MILLIGRAM, AS NEEDED
     Route: 048
     Dates: start: 20200825, end: 20210510

REACTIONS (3)
  - Adrenal insufficiency [Not Recovered/Not Resolved]
  - Urinary tract infection staphylococcal [Recovered/Resolved]
  - Malignant neoplasm progression [Fatal]

NARRATIVE: CASE EVENT DATE: 20200826
